FAERS Safety Report 6467040-2 (Version None)
Quarter: 2009Q4

REPORT INFORMATION
  Report Type: 
  Country: None (occurrence: None)
  Receive Date: 20091202
  Receipt Date: 20081219
  Transmission Date: 20100525
  Serious: No
  Sender: FDA-Public Use
  Company Number: US-AMGEN-KDL325055

PATIENT
  Sex: Female

DRUGS (3)
  1. ENBREL [Suspect]
     Indication: PSORIATIC ARTHROPATHY
     Route: 058
     Dates: start: 20050721
  2. ENBREL [Suspect]
     Indication: PSORIASIS
  3. FLONASE [Concomitant]

REACTIONS (6)
  - DERMATITIS CONTACT [None]
  - FURUNCLE [None]
  - HYPERSENSITIVITY [None]
  - MASS [None]
  - PHARYNGITIS [None]
  - PRURITUS [None]
